FAERS Safety Report 8130255-1 (Version None)
Quarter: 2012Q1

REPORT INFORMATION
  Report Type: 
  Country: None (occurrence: None)
  Receive Date: 20120210
  Receipt Date: 20120203
  Transmission Date: 20120608
  Serious: Yes (Hospitalization)
  Sender: FDA-Public Use
  Company Number: PHHY2011DE77276

PATIENT
  Age: 73 Year
  Sex: Female
  Weight: 64 kg

DRUGS (10)
  1. ZOMETA [Suspect]
     Indication: OSTEOPOROSIS
     Dosage: UNK UKN, UNK
     Route: 042
  2. SEROQUEL [Concomitant]
     Dosage: 12.5 MG PER DAY
     Route: 048
     Dates: start: 20110801, end: 20110909
  3. OXYCODONE HYDROCHLORIDE [Concomitant]
     Indication: PAIN
     Dosage: 5 MG, DAILY
     Route: 048
     Dates: start: 20110801, end: 20110909
  4. SEROQUEL [Concomitant]
     Dosage: 100 MG PER DAY
     Route: 048
  5. THALIDOMIDE [Concomitant]
  6. MIRTAZAPINE [Concomitant]
     Indication: AFFECTIVE DISORDER
     Dosage: 15 MG, PER DAY
     Route: 048
  7. BORTEZOMIB [Concomitant]
  8. AMLODIPINE [Concomitant]
     Indication: HYPERTENSION
     Dosage: 5 MG PER DAY
     Route: 048
  9. OTHER CHEMOTHERAPEUTICS [Concomitant]
  10. LORAZEPAM [Concomitant]

REACTIONS (6)
  - DEHYDRATION [None]
  - GAIT DISTURBANCE [None]
  - HYPOAESTHESIA [None]
  - SENSORY DISTURBANCE [None]
  - PARAESTHESIA [None]
  - POLYNEUROPATHY [None]
